FAERS Safety Report 20504534 (Version 1)
Quarter: 2022Q1

REPORT INFORMATION
  Report Type: Spontaneous
  Country: CA (occurrence: CA)
  Receive Date: 20220223
  Receipt Date: 20220223
  Transmission Date: 20220423
  Serious: Yes (Death, Congenital Anomaly, Other)
  Sender: FDA-Public Use
  Company Number: CA-APOTEX-2022AP003771

PATIENT

DRUGS (1)
  1. RAMIPRIL [Suspect]
     Active Substance: RAMIPRIL
     Indication: Hypertension
     Dosage: UNK
     Route: 064

REACTIONS (6)
  - Foetal exposure during pregnancy [Fatal]
  - Potter^s syndrome [Fatal]
  - Limb deformity [Fatal]
  - Ventricular septal defect [Fatal]
  - Renal aplasia [Fatal]
  - Angiotensin converting enzyme inhibitor foetopathy [Fatal]
